FAERS Safety Report 24147896 (Version 1)
Quarter: 2024Q3

REPORT INFORMATION
  Report Type: Spontaneous
  Country: US (occurrence: None)
  Receive Date: 20240727
  Receipt Date: 20240727
  Transmission Date: 20241016
  Serious: Yes (Life-Threatening, Hospitalization, Disabling, Congenital Anomaly, Other)
  Sender: Public
  Company Number: None

PATIENT
  Age: 33 Year
  Sex: Female
  Weight: 60.3 kg

DRUGS (3)
  1. SUBOXONE [Suspect]
     Active Substance: BUPRENORPHINE HYDROCHLORIDE\NALOXONE HYDROCHLORIDE
     Indication: Drug use disorder
     Dosage: 2  2 FILMS TWICE A DAY SUBLINGUAL ?
     Route: 060
     Dates: start: 20200104, end: 20200601
  2. lidocaine mouth wash [Concomitant]
  3. VITAMIN B COMPLEX [Concomitant]
     Active Substance: CYANOCOBALAMIN\DEXPANTHENOL\NIACINAMIDE\PYRIDOXINE HYDROCHLORIDE\RIBOFLAVIN 5^-PHOSPHATE SODIUM\THIA

REACTIONS (10)
  - Exposure during pregnancy [None]
  - Maternal drugs affecting foetus [None]
  - Amniotic band syndrome [None]
  - Foetal disorder [None]
  - Vascular compression [None]
  - Phalangeal agenesis [None]
  - Congenital bowing of long bones [None]
  - Congenital foot malformation [None]
  - Anisomelia [None]
  - Drug withdrawal syndrome neonatal [None]

NARRATIVE: CASE EVENT DATE: 20200601
